FAERS Safety Report 8520595-6 (Version None)
Quarter: 2012Q3

REPORT INFORMATION
  Report Type: 
  Country: None (occurrence: None)
  Receive Date: 20120719
  Receipt Date: 20120716
  Transmission Date: 20120928
  Serious: Yes (Hospitalization)
  Sender: FDA-Public Use
  Company Number: FR-PFIZER INC-2012170536

PATIENT
  Age: 65 Year
  Sex: Male

DRUGS (1)
  1. ARTHROTEC [Suspect]
     Dosage: 1 DF, 1X/DAY
     Route: 048
     Dates: start: 20120627, end: 20120628

REACTIONS (3)
  - PNEUMONIA [None]
  - INFECTIOUS PLEURAL EFFUSION [None]
  - CONDITION AGGRAVATED [None]
